FAERS Safety Report 12185289 (Version 2)
Quarter: 2016Q1

REPORT INFORMATION
  Report Type: Spontaneous
  Country: PL (occurrence: PL)
  Receive Date: 20160316
  Receipt Date: 20160329
  Transmission Date: 20160526
  Serious: Yes (Congenital Anomaly, Other)
  Sender: FDA-Public Use
  Company Number: PL-PFIZER INC-2016157056

PATIENT
  Sex: Female

DRUGS (1)
  1. CYTOTEC [Suspect]
     Active Substance: MISOPROSTOL
     Route: 064

REACTIONS (5)
  - Body height below normal [Unknown]
  - Nervous system disorder [Unknown]
  - Maternal exposure timing unspecified [Unknown]
  - Underweight [Unknown]
  - Psychomotor retardation [Unknown]
